FAERS Safety Report 15942738 (Version 3)
Quarter: 2019Q2

REPORT INFORMATION
  Report Type: Spontaneous
  Country: US (occurrence: US)
  Receive Date: 20190209
  Receipt Date: 20190521
  Transmission Date: 20190711
  Serious: Yes (Other)
  Sender: FDA-Public Use
  Company Number: US-ASTRAZENECA-2018SF33538

PATIENT
  Age: 65 Year
  Sex: Female
  Weight: 175.5 kg

DRUGS (22)
  1. NEXIUM [Suspect]
     Active Substance: ESOMEPRAZOLE MAGNESIUM
     Indication: GASTROOESOPHAGEAL REFLUX DISEASE
     Route: 048
     Dates: start: 20140514, end: 20150211
  2. ALBUTEROL. [Concomitant]
     Active Substance: ALBUTEROL
  3. FUROSEMIDE. [Concomitant]
     Active Substance: FUROSEMIDE
  4. SPIRONOLACTONE. [Concomitant]
     Active Substance: SPIRONOLACTONE
  5. HYDROCHLOROTHIAZIDE. [Concomitant]
     Active Substance: HYDROCHLOROTHIAZIDE
  6. NEXIUM [Suspect]
     Active Substance: ESOMEPRAZOLE MAGNESIUM
     Indication: GASTROOESOPHAGEAL REFLUX DISEASE
     Dosage: 20.0MG UNKNOWN
     Route: 048
     Dates: start: 20140514
  7. AMLODIPINE [Concomitant]
     Active Substance: AMLODIPINE BESYLATE
  8. LOSARTAN. [Concomitant]
     Active Substance: LOSARTAN
  9. KLOR-CON [Concomitant]
     Active Substance: POTASSIUM CHLORIDE
  10. INVEGA [Concomitant]
     Active Substance: PALIPERIDONE
  11. FUROSEMIDE. [Concomitant]
     Active Substance: FUROSEMIDE
  12. BACITRACIN. [Concomitant]
     Active Substance: BACITRACIN
  13. METOPROLOL TARTRATE. [Concomitant]
     Active Substance: METOPROLOL TARTRATE
  14. HYDRALAZINE [Concomitant]
     Active Substance: HYDRALAZINE HYDROCHLORIDE
  15. AZITHROMYCIN ANHYDROUS. [Concomitant]
     Active Substance: AZITHROMYCIN ANHYDROUS
  16. AMLODIPINE BESYLATE. [Concomitant]
     Active Substance: AMLODIPINE BESYLATE
  17. FLUCONAZOLE. [Concomitant]
     Active Substance: FLUCONAZOLE
  18. LANTUS [Concomitant]
     Active Substance: INSULIN GLARGINE
  19. GLIPIZIDE. [Concomitant]
     Active Substance: GLIPIZIDE
  20. ASPIRIN. [Concomitant]
     Active Substance: ASPIRIN
  21. CIPROFLOXACIN. [Concomitant]
     Active Substance: CIPROFLOXACIN
  22. EUCERIN [Concomitant]
     Active Substance: ENSULIZOLE\EUCERIN\OCTINOXATE\OCTISALATE\TITANIUM DIOXIDE\ZINC OXIDE

REACTIONS (6)
  - Chronic kidney disease [Unknown]
  - Renal failure [Unknown]
  - Acute kidney injury [Unknown]
  - Nephropathy [Not Recovered/Not Resolved]
  - End stage renal disease [Unknown]
  - Gastrooesophageal reflux disease [Unknown]

NARRATIVE: CASE EVENT DATE: 2014
